FAERS Safety Report 11818259 (Version 6)
Quarter: 2017Q2

REPORT INFORMATION
  Report Type: Spontaneous
  Country: US (occurrence: US)
  Receive Date: 20151210
  Receipt Date: 20170406
  Transmission Date: 20170829
  Serious: No
  Sender: FDA-Public Use
  Company Number: US-JNJFOC-20151110222

PATIENT
  Age: 12 Year
  Sex: Male

DRUGS (3)
  1. RISPERIDONE. [Suspect]
     Active Substance: RISPERIDONE
     Indication: PRODUCT USED FOR UNKNOWN INDICATION
     Route: 048
  2. RISPERDAL [Suspect]
     Active Substance: RISPERIDONE
     Indication: TOURETTE^S DISORDER
     Route: 048
     Dates: end: 201403
  3. RISPERDAL [Suspect]
     Active Substance: RISPERIDONE
     Indication: TOURETTE^S DISORDER
     Route: 048
     Dates: start: 201401, end: 20140123

REACTIONS (6)
  - Product use in unapproved indication [Unknown]
  - Tic [Unknown]
  - Gynaecomastia [Unknown]
  - Disturbance in social behaviour [Unknown]
  - Off label use [Unknown]
  - Obesity [Unknown]

NARRATIVE: CASE EVENT DATE: 2014
